FAERS Safety Report 23457115 (Version 1)
Quarter: 2024Q1

REPORT INFORMATION
  Report Type: Spontaneous
  Country: US (occurrence: None)
  Receive Date: 20240129
  Receipt Date: 20240129
  Transmission Date: 20240409
  Serious: No
  Sender: FDA-Public Use
  Company Number: None

PATIENT
  Age: 45 Year
  Sex: Female
  Weight: 88.2 kg

DRUGS (1)
  1. AMLODIPINE AND OLMESARTAN MEDOXOMIL [Suspect]
     Active Substance: AMLODIPINE BESYLATE\OLMESARTAN MEDOXOMIL
     Indication: Hypertension
     Dosage: FREQUENCY : DAILY;?
     Route: 048
     Dates: start: 20240125, end: 20240129

REACTIONS (5)
  - Flatulence [None]
  - Eructation [None]
  - Vomiting [None]
  - Sleep disorder [None]
  - Pain [None]

NARRATIVE: CASE EVENT DATE: 20240127
